FAERS Safety Report 4284924-4 (Version None)
Quarter: 2004Q1

REPORT INFORMATION
  Report Type: 
  Country: None (occurrence: None)
  Receive Date: 20040202
  Receipt Date: 20040113
  Transmission Date: 20041129
  Serious: Yes (Other)
  Sender: FDA-Public Use
  Company Number: PT-JNJFOC-20031202558

PATIENT

DRUGS (3)
  1. ABCIXIMAB (ABCIXIMAB) INJECTION [Suspect]
     Indication: ANGIOPLASTY
     Dosage: SEE IMAGE
  2. ASPIRIN [Concomitant]
  3. HEPARIN [Concomitant]

REACTIONS (2)
  - ARTERIAL INJURY [None]
  - INFECTION [None]
